FAERS Safety Report 4973894-9 (Version None)
Quarter: 2006Q2

REPORT INFORMATION
  Report Type: 
  Country: None (occurrence: None)
  Receive Date: 20060410
  Receipt Date: 20060328
  Transmission Date: 20061013
  Serious: Yes (Hospitalization, Other)
  Sender: FDA-Public Use
  Company Number: 26269

PATIENT
  Age: 58 Year
  Sex: Female

DRUGS (10)
  1. NOREPINEPHRINE BITARTRATE [Suspect]
     Indication: DYSPNOEA EXERTIONAL
     Dosage: 2MG/IV PUSHX1
     Route: 042
     Dates: start: 20060317
  2. BUMETANIDE [Suspect]
  3. ECOTRIN [Concomitant]
  4. VIT B-12 [Concomitant]
  5. LOVENOX [Concomitant]
  6. PROZAC [Concomitant]
  7. NITROGLYN 2% OINTMENT [Concomitant]
  8. DARVOCET [Concomitant]
  9. BUMEX [Concomitant]
  10. K-OUR [Concomitant]

REACTIONS (9)
  - ANXIETY [None]
  - CARDIAC ENZYMES INCREASED [None]
  - CHEST PAIN [None]
  - CIRCUMSTANCE OR INFORMATION CAPABLE OF LEADING TO MEDICATION ERROR [None]
  - DRUG DISPENSING ERROR [None]
  - FEAR [None]
  - REFUSAL OF TREATMENT BY PATIENT [None]
  - VENTRICULAR ARRHYTHMIA [None]
  - WRONG DRUG ADMINISTERED [None]
